FAERS Safety Report 7829154-1 (Version None)
Quarter: 2011Q4

REPORT INFORMATION
  Report Type: 
  Country: None (occurrence: None)
  Receive Date: 20111020
  Receipt Date: 20111012
  Transmission Date: 20120403
  Serious: Yes (Other)
  Sender: FDA-Public Use
  Company Number: PHHY2011US60891

PATIENT
  Sex: Female

DRUGS (7)
  1. LACTULOSE [Concomitant]
     Dosage: UNK UKN, OT
  2. NAPROSYN [Concomitant]
     Dosage: UNK UKN, OT
  3. GILENYA [Suspect]
     Indication: MULTIPLE SCLEROSIS
     Dosage: 0.5 MG, QD
     Route: 048
     Dates: start: 20110329, end: 20110614
  4. LISINOPRIL [Concomitant]
     Dosage: UNK UKN, OT
  5. LEVOXYL [Concomitant]
     Dosage: UNK UKN, OT
  6. LIPITOR [Concomitant]
     Dosage: UNK UKN, OT
  7. LORTAB [Concomitant]
     Dosage: UNK UKN, PRN

REACTIONS (2)
  - RETINAL DISORDER [None]
  - METAMORPHOPSIA [None]
